FAERS Safety Report 9076099 (Version 1)
Quarter: 2013Q1

REPORT INFORMATION
  Report Type: Report from Study
  Country: US (occurrence: US)
  Receive Date: 20130129
  Receipt Date: 20130129
  Transmission Date: 20140127
  Serious: No
  Sender: FDA-Public Use
  Company Number: US-ABBOTT-12P-163-0935714-00

PATIENT
  Age: 38 None
  Sex: Female

DRUGS (6)
  1. HUMIRA 40 MG/0.8 ML PEN [Suspect]
     Indication: PSORIATIC ARTHROPATHY
     Route: 058
     Dates: start: 20120321
  2. HUMIRA 40 MG/0.8 ML PEN [Suspect]
     Indication: PSORIASIS
  3. LANTUS [Concomitant]
     Indication: TYPE 1 DIABETES MELLITUS
  4. NOVOLOG [Concomitant]
     Indication: TYPE 1 DIABETES MELLITUS
  5. CYMBALTA [Concomitant]
     Indication: DEPRESSION
  6. HYDROXYZINE [Concomitant]
     Indication: ANXIETY

REACTIONS (6)
  - Blood glucose increased [Not Recovered/Not Resolved]
  - Stress [Not Recovered/Not Resolved]
  - Gout [Not Recovered/Not Resolved]
  - Local swelling [Unknown]
  - Pruritus [Unknown]
  - Anxiety [Unknown]
